FAERS Safety Report 7494092-3 (Version None)
Quarter: 2011Q2

REPORT INFORMATION
  Report Type: 
  Country: None (occurrence: None)
  Receive Date: 20110520
  Receipt Date: 20110506
  Transmission Date: 20111010
  Serious: Yes (Hospitalization)
  Sender: FDA-Public Use
  Company Number: GB-ALEXION PHARMACEUTICALS INC.-A201001337

PATIENT

DRUGS (2)
  1. SOLIRIS [Suspect]
     Dosage: 1200 MG, Q2W
     Route: 042
  2. SOLIRIS [Suspect]
     Indication: PAROXYSMAL NOCTURNAL HAEMOGLOBINURIA
     Dosage: 900 MG, Q2W
     Route: 042
     Dates: start: 20100820

REACTIONS (3)
  - OEDEMA [None]
  - PRE-ECLAMPSIA [None]
  - DRUG EXPOSURE DURING PREGNANCY [None]
